FAERS Safety Report 4561795-X (Version None)
Quarter: 2005Q1

REPORT INFORMATION
  Report Type: 
  Country: None (occurrence: None)
  Receive Date: 20050125
  Receipt Date: 20050117
  Transmission Date: 20050727
  Serious: No
  Sender: FDA-Public Use
  Company Number: 05H-163-0287029-00

PATIENT
  Age: 91 Year
  Sex: Female
  Weight: 52 kg

DRUGS (13)
  1. HYDROMORPHONE HCL INJECTION (HYDROMORPHONE HYDROCHLORIDE [Suspect]
     Indication: ANALGESIC EFFECT
     Dosage: SEE IMAGE
     Route: 008
  2. LIDOCAINE HYDROCHLORIDE 1.5% W/EPIN 1:200,000 INJECTION (LIDOCAINE HYD [Suspect]
     Dosage: 3 NL, ONCE, EPIDURAL
     Route: 008
  3. BUPIVACAINE HCL 0.25% IJNECTION (BUPIVACAINE HYDROCHLORIDE) (BUPIVACAI [Suspect]
     Indication: ANALGESIC EFFECT
     Dosage: 4 ML, ONCE, EPIDURAL
     Route: 008
  4. BUPIVACAINE [Suspect]
     Indication: ANALGESIC EFFECT
     Dosage: 0.75%, INFUSION, EPIDURAL
     Route: 008
  5. UNFRACTIONATED HEPARIN [Concomitant]
  6. GENERAL ANESTHESIA [Concomitant]
  7. RANITIDINE [Concomitant]
  8. RALOXIFENE HCL [Concomitant]
  9. VERAPAMIL [Concomitant]
  10. CYANOCOBALAMIN [Concomitant]
  11. IRON SUPPLEMENTS [Concomitant]
  12. LATANOPROST [Concomitant]
  13. TIMOLOL MALEATE [Concomitant]

REACTIONS (3)
  - ANAESTHETIC COMPLICATION NEUROLOGICAL [None]
  - MENINGEAL NEOPLASM [None]
  - SPINAL CORD COMPRESSION [None]
